FAERS Safety Report 7221220-7 (Version None)
Quarter: 2010Q4

REPORT INFORMATION
  Report Type: 
  Country: None (occurrence: None)
  Receive Date: 20101227
  Receipt Date: 20101215
  Transmission Date: 20110411
  Serious: Yes (Death, Other)
  Sender: FDA-Public Use
  Company Number: 163-21880-10070859

PATIENT

DRUGS (4)
  1. REVLIMID [Suspect]
     Indication: MULTIPLE MYELOMA
     Dosage: 25 MG, DAILY ON DAYS 1-14, PO, 15 MG, DAILY ON DAYS 1-14, PO
     Route: 048
  2. VELCADE [Suspect]
     Indication: MULTIPLE MYELOMA
     Dosage: 1,3 MG/M2, DAILY ON DAYS 1,4,8,11; 1.3 MG/M2, DAILY ON DAYS 1,8,15,22
  3. DEXAMETHASONE [Suspect]
     Indication: MULTIPLE MYELOMA
     Dosage: 40 MG, DAILY ON DAYS 1, 8, 15
  4. CYCLOPHOSPHAMIDE [Suspect]
     Indication: MULTIPLE MYELOMA
     Dosage: 500 MG/M2, DAYS 1, 8

REACTIONS (9)
  - CONSTIPATION [None]
  - DEEP VEIN THROMBOSIS [None]
  - DIARRHOEA [None]
  - FATIGUE [None]
  - NAUSEA [None]
  - NEUROPATHY PERIPHERAL [None]
  - NEUTROPENIA [None]
  - RENAL FAILURE [None]
  - THROMBOCYTOPENIA [None]
